FAERS Safety Report 6126896-3 (Version None)
Quarter: 2009Q1

REPORT INFORMATION
  Report Type: 
  Country: None (occurrence: None)
  Receive Date: 20090320
  Receipt Date: 20081202
  Transmission Date: 20090719
  Serious: No
  Sender: FDA-Public Use
  Company Number: US-ABBOTT-08P-163-0490844-00

PATIENT
  Sex: Female
  Weight: 62.198 kg

DRUGS (1)
  1. ERYTHROMYCIN BASE [Suspect]
     Indication: DRUG USE FOR UNKNOWN INDICATION
     Dosage: NOT REPORTED
     Route: 048
     Dates: start: 20061101, end: 20061101

REACTIONS (4)
  - ABDOMINAL DISCOMFORT [None]
  - GINGIVAL PAIN [None]
  - PHARYNGEAL INFLAMMATION [None]
  - SALIVARY GLAND ENLARGEMENT [None]
